FAERS Safety Report 20750629 (Version 1)
Quarter: 2022Q2

REPORT INFORMATION
  Report Type: Spontaneous
  Country: US (occurrence: US)
  Receive Date: 20220426
  Receipt Date: 20220426
  Transmission Date: 20220721
  Serious: No
  Sender: FDA-Public Use
  Company Number: US-PFIZER INC-202101375772

PATIENT
  Age: 65 Year
  Sex: Female

DRUGS (2)
  1. CHANTIX [Suspect]
     Active Substance: VARENICLINE TARTRATE
     Indication: Smoking cessation therapy
     Dosage: STARTING WEEK 0.5MG TWICE A DAY
  2. CHANTIX [Suspect]
     Active Substance: VARENICLINE TARTRATE
     Dosage: CONTINUING WEEKS WAS 1 MG TWICE A DAY

REACTIONS (3)
  - Nausea [Recovering/Resolving]
  - Weight decreased [Recovered/Resolved]
  - Headache [Recovering/Resolving]
